FAERS Safety Report 20769397 (Version 1)
Quarter: 2022Q2

REPORT INFORMATION
  Report Type: Spontaneous
  Country: US (occurrence: US)
  Receive Date: 20220429
  Receipt Date: 20220429
  Transmission Date: 20220721
  Serious: Yes (Life-Threatening, Hospitalization)
  Sender: FDA-Public Use
  Company Number: US-MYLANLABS-2022M1031238

PATIENT
  Age: 8 Year
  Sex: Female

DRUGS (17)
  1. VANCOMYCIN [Suspect]
     Active Substance: VANCOMYCIN
     Indication: Evidence based treatment
     Dosage: 15 MILLIGRAM/KILOGRAM, Q6H
     Route: 065
  2. TACROLIMUS [Suspect]
     Active Substance: TACROLIMUS
     Indication: Interstitial lung disease
     Dosage: 1.25 MILLIGRAM, BID
     Route: 065
  3. TACROLIMUS [Suspect]
     Active Substance: TACROLIMUS
     Dosage: UNK(GOAL SERUM LEVEL OF 10-15 NG/ML)
     Route: 065
  4. METHYLPREDNISOLONE [Suspect]
     Active Substance: METHYLPREDNISOLONE
     Indication: Interstitial lung disease
     Dosage: 30 MILLIGRAM/KILOGRAM
     Route: 065
  5. MEROPENEM [Suspect]
     Active Substance: MEROPENEM
     Indication: Evidence based treatment
     Dosage: 20 MILLIGRAM/KILOGRAM, Q8H
     Route: 065
  6. NITRIC OXIDE [Suspect]
     Active Substance: NITRIC OXIDE
     Indication: Interstitial lung disease
     Dosage: UNK, RESPIRATORY (INHALATION)
     Route: 055
  7. HUMAN IMMUNOGLOBULIN G [Suspect]
     Active Substance: HUMAN IMMUNOGLOBULIN G
     Indication: Interstitial lung disease
     Dosage: 2 GRAM PER KILOGRAM
     Route: 042
  8. HUMAN IMMUNOGLOBULIN G [Suspect]
     Active Substance: HUMAN IMMUNOGLOBULIN G
     Dosage: 400 MILLIGRAM/KILOGRAM (ACTUAL DOSE BEING 10 G/DOSE)
     Route: 042
  9. RITUXIMAB [Suspect]
     Active Substance: RITUXIMAB
     Indication: Interstitial lung disease
     Dosage: 375 MILLIGRAM/SQ. METER, QW
     Route: 065
  10. RITUXIMAB [Suspect]
     Active Substance: RITUXIMAB
     Dosage: UNK, Q2W
     Route: 065
  11. CYTOXAN [Suspect]
     Active Substance: CYCLOPHOSPHAMIDE
     Indication: Interstitial lung disease
     Dosage: 15 MILLIGRAM/KILOGRAM, QD
     Route: 065
  12. CYTOXAN [Suspect]
     Active Substance: CYCLOPHOSPHAMIDE
     Dosage: UNK, QW
     Route: 065
  13. POLYMYXIN B [Suspect]
     Active Substance: POLYMYXIN B
     Indication: Interstitial lung disease
     Dosage: UNK
     Route: 065
  14. COTRIMOXAZOLE [Concomitant]
     Active Substance: SULFAMETHOXAZOLE\TRIMETHOPRIM
     Indication: Urinary tract infection
     Dosage: UNK
     Route: 065
  15. ANAKINRA [Concomitant]
     Active Substance: ANAKINRA
     Indication: Interstitial lung disease
     Dosage: UNK
     Route: 065
  16. ANAKINRA [Concomitant]
     Active Substance: ANAKINRA
     Dosage: UNK (TREATMENT RESTARTED)
     Route: 065
  17. METHOTREXATE [Concomitant]
     Active Substance: METHOTREXATE
     Indication: Dermatomyositis
     Dosage: UNK
     Route: 065

REACTIONS (2)
  - Drug ineffective [Unknown]
  - Off label use [Unknown]
